FAERS Safety Report 12098855 (Version 1)
Quarter: 2016Q1

REPORT INFORMATION
  Report Type: Spontaneous
  Country: IT (occurrence: IT)
  Receive Date: 20160222
  Receipt Date: 20160222
  Transmission Date: 20160526
  Serious: Yes (Hospitalization)
  Sender: FDA-Public Use
  Company Number: IT-009507513-1602ITA009054

PATIENT
  Age: 55 Year
  Sex: Male

DRUGS (3)
  1. REBETOL [Suspect]
     Active Substance: RIBAVIRIN
     Dosage: 400 MG, DAILY
     Route: 048
     Dates: start: 20151024, end: 20160118
  2. EXVIERA [Suspect]
     Active Substance: DASABUVIR
     Dosage: 250 MG, DAILY
     Dates: start: 20151024, end: 20160118
  3. VIEKIRAX [Suspect]
     Active Substance: OMBITASVIR\PARITAPREVIR\RITONAVIR
     Dosage: 25 MG, DAILY

REACTIONS (2)
  - Jaundice cholestatic [Unknown]
  - Pruritus [Unknown]

NARRATIVE: CASE EVENT DATE: 20160116
